FAERS Safety Report 6748127-3 (Version None)
Quarter: 2010Q2

REPORT INFORMATION
  Report Type: 
  Country: None (occurrence: None)
  Receive Date: 20100531
  Receipt Date: 20100521
  Transmission Date: 20101027
  Serious: Yes (Other)
  Sender: FDA-Public Use
  Company Number: US-BAXTER-2010BH013838

PATIENT
  Age: 59 Year
  Sex: Male

DRUGS (2)
  1. FEIBA VH IMMUNO [Suspect]
     Indication: HAEMOPHILIA
     Route: 065
  2. AUTOPLEX [Suspect]
     Indication: HAEMOPHILIA
     Route: 065

REACTIONS (3)
  - ANAPHYLACTIC REACTION [None]
  - ANXIETY [None]
  - BLOOD PRESSURE INCREASED [None]
